FAERS Safety Report 9341739 (Version 1)
Quarter: 2013Q2

REPORT INFORMATION
  Report Type: Spontaneous
  Country: US (occurrence: US)
  Receive Date: 20130611
  Receipt Date: 20130611
  Transmission Date: 20140414
  Serious: Yes (Hospitalization)
  Sender: FDA-Public Use
  Company Number: US-BAYER-2013-071395

PATIENT
  Age: 20 Year
  Sex: Female
  Weight: 139.23 kg

DRUGS (8)
  1. YASMIN [Suspect]
  2. METFORMIN [Concomitant]
     Dosage: 500 MG, BID
     Dates: start: 20060704
  3. AVANDIA [Concomitant]
     Dosage: 2 MG, DAILY
     Dates: start: 20060704
  4. PRINIVIL [Concomitant]
     Dosage: 5 MG, DAILY
     Dates: start: 20060704
  5. GLUCOPHAGE [Concomitant]
  6. INSULIN [Concomitant]
  7. ANTIBIOTICS [Concomitant]
  8. MOTRIN [Concomitant]

REACTIONS (1)
  - Thrombophlebitis superficial [None]
